FAERS Safety Report 16153857 (Version 21)
Quarter: 2020Q3

REPORT INFORMATION
  Report Type: Spontaneous
  Country: US (occurrence: US)
  Receive Date: 20190403
  Receipt Date: 20200701
  Transmission Date: 20201102
  Serious: Yes (Other)
  Sender: FDA-Public Use
  Company Number: US-PFIZER INC-2019142345

PATIENT
  Age: 50 Year
  Sex: Female

DRUGS (2)
  1. LYRICA [Suspect]
     Active Substance: PREGABALIN
     Dosage: 300 MG, 1X/DAY (EVERY NIGHT/ BEDTIME)
     Route: 048
  2. LYRICA [Suspect]
     Active Substance: PREGABALIN
     Indication: FIBROMYALGIA
     Dosage: 150 MG, 1X/DAY (EVERY NIGHT/ BEDTIME)
     Route: 048

REACTIONS (20)
  - Speech disorder [Unknown]
  - Bronchitis chronic [Unknown]
  - Joint injury [Unknown]
  - Pyrexia [Unknown]
  - Mobility decreased [Unknown]
  - Anxiety [Unknown]
  - Gait disturbance [Unknown]
  - Nervous system disorder [Unknown]
  - Dyspnoea [Unknown]
  - Fatigue [Unknown]
  - Gait inability [Unknown]
  - Insomnia [Unknown]
  - Injection site injury [Unknown]
  - Dehydration [Unknown]
  - Migraine [Unknown]
  - Cardiac disorder [Unknown]
  - Loss of personal independence in daily activities [Unknown]
  - Pain [Unknown]
  - Bronchitis [Unknown]
  - Malaise [Unknown]
